FAERS Safety Report 24901282 (Version 1)
Quarter: 2025Q1

REPORT INFORMATION
  Report Type: Spontaneous
  Country: IN (occurrence: IN)
  Receive Date: 20250129
  Receipt Date: 20250129
  Transmission Date: 20250409
  Serious: Yes (Death, Hospitalization, Other)
  Sender: PFIZER
  Company Number: IN-PFIZER INC-PV202400020667

PATIENT
  Age: 38 Year
  Sex: Male

DRUGS (5)
  1. LORLATINIB [Suspect]
     Active Substance: LORLATINIB
     Dosage: 100 MG, 1X/DAY
     Route: 048
  2. LORLATINIB [Suspect]
     Active Substance: LORLATINIB
     Dosage: 100 MG, 1X/DAY
     Route: 048
     Dates: start: 20231118
  3. LORLATINIB [Suspect]
     Active Substance: LORLATINIB
     Route: 048
     Dates: start: 20231208, end: 20241231
  4. LORLATINIB [Suspect]
     Active Substance: LORLATINIB
     Route: 048
     Dates: start: 20231209, end: 202401
  5. LORLATINIB [Suspect]
     Active Substance: LORLATINIB
     Route: 048
     Dates: start: 20240104

REACTIONS (6)
  - Death [Fatal]
  - Pyrexia [Unknown]
  - Oedema [Unknown]
  - Dysphonia [Unknown]
  - Cough [Unknown]
  - Dyspnoea [Unknown]
